FAERS Safety Report 6015369-4 (Version None)
Quarter: 2008Q4

REPORT INFORMATION
  Report Type: 
  Country: None (occurrence: None)
  Receive Date: 20081222
  Receipt Date: 20081215
  Transmission Date: 20090506
  Serious: Yes (Hospitalization)
  Sender: FDA-Public Use
  Company Number: US-BIOGENIDEC-2008BI031251

PATIENT
  Age: 68 Year
  Sex: Male

DRUGS (1)
  1. AVONEX [Suspect]
     Indication: MULTIPLE SCLEROSIS
     Route: 030
     Dates: start: 20080115, end: 20081021

REACTIONS (5)
  - ADVERSE EVENT [None]
  - CLOSTRIDIAL INFECTION [None]
  - FATIGUE [None]
  - PAROTITIS [None]
  - STAPHYLOCOCCAL INFECTION [None]
